FAERS Safety Report 13423350 (Version 1)
Quarter: 2017Q2

REPORT INFORMATION
  Report Type: Not Available
  Country: None (occurrence: US)
  Receive Date: 20170410
  Receipt Date: 20170410
  Transmission Date: 20170830
  Serious: No
  Sender: FDA-Public Use
  Company Number: US-AKORN-45563

PATIENT

DRUGS (1)
  1. ADENOSINE INJECTION USP [Suspect]
     Active Substance: ADENOSINE

REACTIONS (1)
  - Drug ineffective [Unknown]
